FAERS Safety Report 24122733 (Version 1)
Quarter: 2024Q3

REPORT INFORMATION
  Report Type: Spontaneous
  Country: NO (occurrence: NO)
  Receive Date: 20240723
  Receipt Date: 20240723
  Transmission Date: 20241016
  Serious: Yes (Other)
  Sender: NOVO NORDISK
  Company Number: None

PATIENT
  Age: 55 Year
  Sex: Male
  Weight: 140 kg

DRUGS (8)
  1. ASPIRIN\MAGNESIUM OXIDE [Concomitant]
     Active Substance: ASPIRIN\MAGNESIUM OXIDE
     Indication: Thrombosis prophylaxis
     Dosage: 75 MG, QD (1DF)
     Dates: start: 201808
  2. OZEMPIC [Suspect]
     Active Substance: SEMAGLUTIDE
     Indication: Type 2 diabetes mellitus
     Dosage: UNK (QW)
     Route: 058
     Dates: start: 20221227
  3. OZEMPIC [Suspect]
     Active Substance: SEMAGLUTIDE
     Dosage: UNK (QW) (INCREASED DOSE)
     Route: 058
  4. OZEMPIC [Suspect]
     Active Substance: SEMAGLUTIDE
     Dosage: UNK (QW) (DOSE REDUCED)
     Route: 058
     Dates: end: 20230718
  5. SYNJARDY [Concomitant]
     Active Substance: EMPAGLIFLOZIN\METFORMIN HYDROCHLORIDE
     Indication: Type 2 diabetes mellitus
     Dosage: 1 DF (EVERY 12 HOURS)
     Dates: start: 2020, end: 2024
  6. METOPROLOL SUCCINATE [Concomitant]
     Active Substance: METOPROLOL SUCCINATE
     Indication: Hypertension
     Dosage: 1 DF QD
     Dates: start: 201808
  7. METFORMIN ORIFARM [Concomitant]
     Indication: Type 2 diabetes mellitus
     Dosage: 500 MG, BID
     Dates: start: 201808
  8. EZETIMIBE [Concomitant]
     Active Substance: EZETIMIBE
     Indication: Hypercholesterolaemia
     Dosage: 10 MG, QD(ONE TABLET IN THE EVENING)
     Dates: start: 201808

REACTIONS (7)
  - Intestinal obstruction [Recovered/Resolved]
  - Regurgitation [Recovered/Resolved]
  - Vomiting [Recovered/Resolved]
  - Nausea [Recovered/Resolved]
  - Abdominal distension [Recovered/Resolved]
  - Constipation [Recovered/Resolved]
  - Eructation [Recovered/Resolved]
